FAERS Safety Report 6273661-2 (Version None)
Quarter: 2009Q3

REPORT INFORMATION
  Report Type: 
  Country: None (occurrence: None)
  Receive Date: 20090720
  Receipt Date: 20090708
  Transmission Date: 20100115
  Serious: Yes (Death, Hospitalization)
  Sender: FDA-Public Use
  Company Number: CH-BAYER-200925083GPV

PATIENT
  Age: 55 Year
  Sex: Male

DRUGS (12)
  1. ASPIRIN [Suspect]
     Indication: CARDIOMYOPATHY
     Dosage: TOTAL DAILY DOSE: 100 MG  UNIT DOSE: 100 MG
     Route: 048
  2. IRFEN [Suspect]
     Indication: PAIN
     Route: 048
     Dates: start: 20090528, end: 20090530
  3. NOVALGIN [Suspect]
     Indication: PAIN
     Route: 048
     Dates: start: 20090528, end: 20090528
  4. PLAVIX [Suspect]
     Indication: CARDIOMYOPATHY
     Dosage: TOTAL DAILY DOSE: 75 MG  UNIT DOSE: 75 MG
     Route: 048
  5. BELOC ZOK [Concomitant]
     Route: 048
  6. ALDACTONE [Concomitant]
     Route: 048
  7. BLOPRESS PLUS [Concomitant]
     Route: 048
  8. INSULIN [Concomitant]
     Route: 058
  9. TIENAM [Concomitant]
     Route: 041
     Dates: end: 20090530
  10. VANCOMYCIN [Concomitant]
     Route: 041
     Dates: start: 20090529, end: 20090530
  11. PRAVASTATIN [Concomitant]
     Route: 048
  12. ZYPREXA [Concomitant]
     Route: 048

REACTIONS (6)
  - ABDOMINAL PAIN [None]
  - ACUTE MYOCARDIAL INFARCTION [None]
  - ACUTE PULMONARY OEDEMA [None]
  - CARDIAC ARREST [None]
  - DUODENAL ULCER HAEMORRHAGE [None]
  - LOSS OF CONSCIOUSNESS [None]
